FAERS Safety Report 15271821 (Version 1)
Quarter: 2018Q4

REPORT INFORMATION
  Report Type: Spontaneous
  Country: US (occurrence: US)
  Receive Date: 20180813
  Receipt Date: 20180813
  Transmission Date: 20190204
  Serious: Yes (Death, Hospitalization, Other)
  Sender: FDA-Public Use
  Company Number: US-ZYDUS-021086

PATIENT
  Age: 48 Year
  Sex: Female

DRUGS (3)
  1. OXYCODONE [Suspect]
     Active Substance: OXYCODONE
     Indication: PRODUCT USED FOR UNKNOWN INDICATION
     Route: 065
  2. DIAMORPHINE [Suspect]
     Active Substance: DIAMORPHINE
     Indication: PRODUCT USED FOR UNKNOWN INDICATION
     Route: 065
  3. MORPHINE/MORPHINE HYDROCHLORIDE/MORPHINE SULFATE/MORPHINE TARTRATE [Suspect]
     Active Substance: MORPHINE\MORPHINE HYDROCHLORIDE\MORPHINE SULFATE\MORPHINE TARTRATE
     Indication: PRODUCT USED FOR UNKNOWN INDICATION
     Route: 065

REACTIONS (16)
  - Mental status changes [Unknown]
  - Aphasia [Unknown]
  - Posturing [Unknown]
  - Drug abuse [Unknown]
  - Lethargy [Recovered/Resolved]
  - Apraxia [Unknown]
  - Selective mutism [Unknown]
  - Overdose [Unknown]
  - Depressed level of consciousness [Recovered/Resolved]
  - Gait disturbance [Unknown]
  - Hyperreflexia [Unknown]
  - Tremor [Unknown]
  - Toxic leukoencephalopathy [Fatal]
  - Palmomental reflex [Unknown]
  - Autonomic nervous system imbalance [Unknown]
  - Abnormal behaviour [Unknown]
